FAERS Safety Report 18871618 (Version 1)
Quarter: 2021Q1

REPORT INFORMATION
  Report Type: Spontaneous
  Country: US (occurrence: US)
  Receive Date: 20210210
  Receipt Date: 20210210
  Transmission Date: 20210420
  Serious: No
  Sender: FDA-Public Use
  Company Number: US-ALLERGAN-2025332US

PATIENT
  Sex: Female
  Weight: 50.79 kg

DRUGS (3)
  1. ESTRADIOL TRANSDERMAL SYSTEM [Concomitant]
     Active Substance: ESTRADIOL
     Dosage: UNK
  2. TAZAROTENE ? BP [Suspect]
     Active Substance: TAZAROTENE
     Indication: ACNE
     Dosage: UNK, QOD
     Route: 061
  3. SPIRONOLACTONE. [Concomitant]
     Active Substance: SPIRONOLACTONE
     Dosage: UNK

REACTIONS (6)
  - Erythema [Unknown]
  - Skin exfoliation [Unknown]
  - Skin burning sensation [Recovered/Resolved]
  - Product quality issue [Unknown]
  - Inappropriate schedule of product administration [Unknown]
  - Facial pain [Unknown]
